FAERS Safety Report 17914453 (Version 8)
Quarter: 2022Q1

REPORT INFORMATION
  Report Type: Spontaneous
  Country: US (occurrence: US)
  Receive Date: 20200618
  Receipt Date: 20220127
  Transmission Date: 20220423
  Serious: Yes (Hospitalization)
  Sender: FDA-Public Use
  Company Number: US-ADAMAS PHARMA, LLC-2020ADA01108

PATIENT
  Age: 67 Year
  Sex: Male

DRUGS (3)
  1. GOCOVRI [Suspect]
     Active Substance: AMANTADINE
     Indication: Tardive dyskinesia
     Dosage: UNK
     Route: 048
     Dates: start: 201709
  2. GOCOVRI [Suspect]
     Active Substance: AMANTADINE
     Indication: Parkinson^s disease
  3. DEEP BRAIN STIMULATION [Concomitant]
     Dosage: UNK
     Dates: start: 2014

REACTIONS (12)
  - Spinal laminectomy [Recovering/Resolving]
  - Spinal stenosis [Recovering/Resolving]
  - Parkinson^s disease [Not Recovered/Not Resolved]
  - Medical device battery replacement [Recovered/Resolved]
  - Condition aggravated [Not Recovered/Not Resolved]
  - Fear [Not Recovered/Not Resolved]
  - Freezing phenomenon [Not Recovered/Not Resolved]
  - Depression [Not Recovered/Not Resolved]
  - Anxiety [Not Recovered/Not Resolved]
  - Fall [Not Recovered/Not Resolved]
  - Fatigue [Unknown]
  - Gait disturbance [Not Recovered/Not Resolved]

NARRATIVE: CASE EVENT DATE: 20201223
